FAERS Safety Report 14075199 (Version 3)
Quarter: 2018Q1

REPORT INFORMATION
  Report Type: Spontaneous
  Country: US (occurrence: US)
  Receive Date: 20171011
  Receipt Date: 20180209
  Transmission Date: 20180508
  Serious: No
  Sender: FDA-Public Use
  Company Number: US-ACTELION-A-US2017-160739

PATIENT
  Age: 43 Year
  Sex: Female

DRUGS (2)
  1. OPSUMIT [Suspect]
     Active Substance: MACITENTAN
     Indication: PULMONARY ARTERIAL HYPERTENSION
     Dosage: 10 MG, QD
     Route: 048
     Dates: start: 20161017
  2. REVATIO [Concomitant]
     Active Substance: SILDENAFIL CITRATE

REACTIONS (7)
  - Nausea [Unknown]
  - Confusional state [Unknown]
  - Limb crushing injury [Unknown]
  - Joint injury [Unknown]
  - Feeling hot [Unknown]
  - Accidental overdose [Unknown]
  - Pain [Unknown]

NARRATIVE: CASE EVENT DATE: 20170201
